FAERS Safety Report 9305839 (Version 1)
Quarter: 2013Q2

REPORT INFORMATION
  Report Type: Spontaneous
  Country: US (occurrence: None)
  Receive Date: 20130520
  Receipt Date: 20130520
  Transmission Date: 20140414
  Serious: Yes (Hospitalization)
  Sender: FDA-Public Use
  Company Number: SYM-2013-03803

PATIENT
  Age: 72 Year
  Sex: Male

DRUGS (1)
  1. XENAZINE (TETRABENAZINE) (TABLET) (TETRABENAZINE) [Suspect]
     Indication: PRODUCT USED FOR UNKNOWN INDICATION
     Dosage: 50 MG, 2 IN 1 D, ORAL
     Route: 048
     Dates: start: 20120308, end: 20130404

REACTIONS (1)
  - Investigation [None]
